FAERS Safety Report 17080587 (Version 1)
Quarter: 2019Q4

REPORT INFORMATION
  Report Type: Spontaneous
  Country: US (occurrence: US)
  Receive Date: 20191127
  Receipt Date: 20191127
  Transmission Date: 20200122
  Serious: Yes (Hospitalization, Other)
  Sender: FDA-Public Use
  Company Number: US-TORRENT-00006978

PATIENT
  Age: 28 Year
  Sex: Male

DRUGS (2)
  1. RISPERIDONE. [Interacting]
     Active Substance: RISPERIDONE
     Indication: SCHIZOAFFECTIVE DISORDER
     Dosage: LONG-ACTING INJECTION
  2. CARBAMAZEPINE. [Suspect]
     Active Substance: CARBAMAZEPINE
     Indication: ENZYME INDUCTION
     Dosage: UNKNOWN

REACTIONS (8)
  - Immobile [Recovering/Resolving]
  - Off label use [Unknown]
  - Drug intolerance [Recovering/Resolving]
  - Dysarthria [Recovering/Resolving]
  - Extrapyramidal disorder [Recovered/Resolved]
  - Catatonia [Recovering/Resolving]
  - Drug interaction [Unknown]
  - Dysphagia [Recovering/Resolving]
